FAERS Safety Report 6519064-4 (Version None)
Quarter: 2009Q4

REPORT INFORMATION
  Report Type: 
  Country: None (occurrence: None)
  Receive Date: 20091228
  Receipt Date: 20091217
  Transmission Date: 20100525
  Serious: Yes (Other)
  Sender: FDA-Public Use
  Company Number: JP-ROCHE-612976

PATIENT
  Age: 80 Year
  Sex: Male
  Weight: 59 kg

DRUGS (3)
  1. BEVACIZUMAB [Suspect]
     Indication: NEOVASCULARISATION
     Dosage: DOSAGE: 1.25 MG/0.05 ML
     Route: 031
     Dates: start: 20081216, end: 20081216
  2. KENACORT [Concomitant]
     Route: 031
     Dates: start: 20081216, end: 20081216
  3. VISUDYNE [Concomitant]
     Route: 065

REACTIONS (2)
  - OCULAR HYPERAEMIA [None]
  - VITREOUS OPACITIES [None]
